FAERS Safety Report 8525589-2 (Version None)
Quarter: 2012Q3

REPORT INFORMATION
  Report Type: 
  Country: None (occurrence: None)
  Receive Date: 20120720
  Receipt Date: 20120710
  Transmission Date: 20120928
  Serious: Yes (Death, Hospitalization)
  Sender: FDA-Public Use
  Company Number: US-VERTEX PHARMACEUTICALS INC.-AE-2012-009006

PATIENT
  Sex: Male

DRUGS (3)
  1. RIBAVIRIN [Concomitant]
     Indication: HEPATITIS C
     Dates: start: 20120507
  2. PEGINTERFERON ALFA-2A [Concomitant]
     Indication: HEPATITIS C
     Dates: start: 20120507
  3. INCIVEK [Suspect]
     Indication: HEPATITIS C
     Dates: start: 20120507

REACTIONS (3)
  - SEPSIS [None]
  - ABDOMINAL PAIN [None]
  - NEUTROPENIA [None]
